FAERS Safety Report 8235551-5 (Version None)
Quarter: 2012Q1

REPORT INFORMATION
  Report Type: 
  Country: None (occurrence: None)
  Receive Date: 20120322
  Receipt Date: 20120315
  Transmission Date: 20120608
  Serious: Yes (Disabling)
  Sender: FDA-Public Use
  Company Number: AUR-APL-2012-01269

PATIENT
  Age: 43 Year
  Sex: Male
  Weight: 101 kg

DRUGS (13)
  1. AMLODIPINE [Suspect]
     Indication: PRODUCT USED FOR UNKNOWN INDICATION
     Dates: start: 20111121
  2. TRAXAM (FELBINAC) [Concomitant]
  3. VENTOLIN [Concomitant]
  4. ACETAMINOPHEN W/ CODEINE [Concomitant]
  5. PREGABALIN [Concomitant]
  6. SERETIDE (SERETIDE) [Concomitant]
  7. QUININE SULFATE [Concomitant]
  8. BENDROFLUMETHIAZIDE (BENDROFLUMETHIAZIDE) [Concomitant]
  9. PERMETHRIN [Concomitant]
  10. RAMIPRIL [Concomitant]
  11. DULOXETINE HYDROCHLORIDE [Concomitant]
  12. FENTANYL [Concomitant]
  13. PRAVASTATIN [Concomitant]

REACTIONS (2)
  - JOINT SWELLING [None]
  - OEDEMA PERIPHERAL [None]
